FAERS Safety Report 18538506 (Version 1)
Quarter: 2020Q4

REPORT INFORMATION
  Report Type: Spontaneous
  Country: HU (occurrence: HU)
  Receive Date: 20201124
  Receipt Date: 20201124
  Transmission Date: 20210114
  Serious: Yes (Other)
  Sender: FDA-Public Use
  Company Number: NVSC2020HU270499

PATIENT
  Age: 45 Year
  Sex: Female

DRUGS (5)
  1. ZOLADEX [Concomitant]
     Active Substance: GOSERELIN ACETATE
     Indication: PRODUCT USED FOR UNKNOWN INDICATION
     Dosage: 3.6 MG (EVERY 28 DAYS)
     Route: 065
     Dates: start: 20200625
  2. KISQALI [Suspect]
     Active Substance: RIBOCICLIB
     Indication: BREAST CANCER
     Dosage: 600 MG, QD (21 DAYS, FOLLOWED BY A 7-DAY BREAK)
     Route: 065
     Dates: start: 20200625
  3. LETROZOLE. [Suspect]
     Active Substance: LETROZOLE
     Indication: BREAST CANCER
     Dosage: 1 DF, QD
     Route: 065
     Dates: start: 20200625
  4. BONESSA [Concomitant]
     Active Substance: IBANDRONATE SODIUM
     Indication: PRODUCT USED FOR UNKNOWN INDICATION
     Dosage: UNK
     Route: 065
     Dates: start: 20200511
  5. BONESSA [Concomitant]
     Active Substance: IBANDRONATE SODIUM
     Dosage: UNK
     Route: 065
     Dates: start: 202006

REACTIONS (4)
  - Bone pain [Recovering/Resolving]
  - Spinal stenosis [Unknown]
  - Metastases to bone [Unknown]
  - Metastases to spinal cord [Unknown]
